FAERS Safety Report 8811427 (Version 2)
Quarter: 2012Q4

REPORT INFORMATION
  Report Type: 
  Country: GT (occurrence: GT)
  Receive Date: 20120927
  Receipt Date: 20121012
  Transmission Date: 20130627
  Serious: Yes (Death, Hospitalization, Other)
  Sender: FDA-Public Use
  Company Number: GT-PFIZER INC-2012238957

PATIENT
  Age: 75 Year
  Sex: Male

DRUGS (4)
  1. PANTOPRAZOLE [Suspect]
     Dosage: UNK
     Route: 065
  2. BUDESONIDE [Suspect]
     Dosage: UNK
     Route: 055
  3. INDACATEROL [Suspect]
     Indication: CHRONIC OBSTRUCTIVE PULMONARY DISEASE
     Dosage: 150 ug, 1x/day
     Route: 055
  4. FORADIL [Suspect]
     Dosage: 12 ug, 2x/day
     Route: 055

REACTIONS (4)
  - Pneumonia [Fatal]
  - Renal failure acute [Not Recovered/Not Resolved]
  - Lower gastrointestinal haemorrhage [Recovered/Resolved]
  - Blood glucose increased [Recovered/Resolved]
